FAERS Safety Report 5366877-0 (Version None)
Quarter: 2007Q2

REPORT INFORMATION
  Report Type: 
  Country: None (occurrence: None)
  Receive Date: 20070622
  Receipt Date: 20061106
  Transmission Date: 20071010
  Serious: No
  Sender: FDA-Public Use
  Company Number: US-ASTRAZENECA-2006UW21850

PATIENT
  Age: 83 Year
  Sex: Female
  Weight: 37.6 kg

DRUGS (1)
  1. RHINOCORT [Suspect]
     Indication: MIDDLE EAR EFFUSION
     Dosage: 2 SPRAYS EACH NOSTRIL ONCE DAILY
     Route: 045

REACTIONS (2)
  - AGEUSIA [None]
  - ANOSMIA [None]
